FAERS Safety Report 8567636-8 (Version None)
Quarter: 2012Q3

REPORT INFORMATION
  Report Type: 
  Country: None (occurrence: None)
  Receive Date: 20120803
  Receipt Date: 20120723
  Transmission Date: 20120928
  Serious: Yes (Other)
  Sender: FDA-Public Use
  Company Number: AU-ROCHE-1095613

PATIENT
  Sex: Female

DRUGS (11)
  1. ENDEP [Concomitant]
  2. METHOTREXATE [Concomitant]
     Route: 048
  3. CARTIA (AUSTRALIA) [Concomitant]
  4. CODALGIN FORTE [Concomitant]
  5. RANITIDINE HCL [Concomitant]
  6. OSTEOVIT (CALCIUM/VIT D) [Concomitant]
  7. PREDNISOLONE [Concomitant]
  8. ACTEMRA [Suspect]
     Indication: RHEUMATOID ARTHRITIS
     Route: 042
     Dates: start: 20110208
  9. LIPITOR [Concomitant]
     Route: 048
  10. FOLIC ACID [Concomitant]
  11. NEXIUM [Concomitant]

REACTIONS (3)
  - ARTHRALGIA [None]
  - JOINT STIFFNESS [None]
  - JOINT SWELLING [None]
